FAERS Safety Report 4578893-7 (Version None)
Quarter: 2005Q1

REPORT INFORMATION
  Report Type: 
  Country: None (occurrence: None)
  Receive Date: 20050211
  Receipt Date: 20050208
  Transmission Date: 20050727
  Serious: Yes (Death)
  Sender: FDA-Public Use
  Company Number: US-ABBOTT-05P-163-0289947-01

PATIENT
  Sex: Male

DRUGS (4)
  1. RITONAVIR SOFT GELATIN CAPSULES [Suspect]
     Indication: HIV INFECTION
     Route: 048
     Dates: start: 20030224
  2. TIPRANAVIR [Concomitant]
     Indication: HIV INFECTION
     Dates: start: 20030224
  3. LAMIVUDINE [Concomitant]
     Indication: HIV INFECTION
     Dates: start: 20020603
  4. AMLODIPINE [Concomitant]
     Indication: HYPERTENSION
     Route: 048
     Dates: start: 20041008

REACTIONS (1)
  - CONVULSION [None]
